FAERS Safety Report 8518926-6 (Version None)
Quarter: 2012Q3

REPORT INFORMATION
  Report Type: 
  Country: None (occurrence: None)
  Receive Date: 20120718
  Receipt Date: 20120713
  Transmission Date: 20120928
  Serious: Yes (Other)
  Sender: FDA-Public Use
  Company Number: US-GLAXOSMITHKLINE-A0984459A

PATIENT
  Age: 56 Year
  Sex: Female

DRUGS (7)
  1. ALBUTEROL SULFATE [Concomitant]
  2. DEXILANT [Concomitant]
  3. ADVAIR DISKUS 100/50 [Suspect]
     Indication: ASTHMA
     Dosage: 1PUFF TWICE PER DAY
     Route: 055
     Dates: start: 20010101, end: 20120301
  4. SINGULAIR [Concomitant]
  5. BUPROPION HCL [Concomitant]
  6. ZOLPIDEM TARTRATE [Concomitant]
  7. MIRAPEX [Concomitant]

REACTIONS (3)
  - DRUG INEFFECTIVE [None]
  - INHALATION THERAPY [None]
  - ASTHMA [None]
